FAERS Safety Report 5772590-8 (Version None)
Quarter: 2008Q2

REPORT INFORMATION
  Report Type: 
  Country: None (occurrence: None)
  Receive Date: 20080613
  Receipt Date: 20080606
  Transmission Date: 20081010
  Serious: Yes (Hospitalization, Other)
  Sender: FDA-Public Use
  Company Number: US-AMGEN-KDL269706

PATIENT
  Sex: Female
  Weight: 14 kg

DRUGS (16)
  1. EPOGEN [Suspect]
     Indication: DIALYSIS
     Route: 042
     Dates: start: 20050401
  2. EPOGEN [Suspect]
  3. REGLAN [Concomitant]
  4. LIPITOR [Concomitant]
  5. PERIACTIN [Concomitant]
  6. ATENOLOL [Concomitant]
  7. ZYRTEC [Concomitant]
  8. VICON-C [Concomitant]
  9. NORVASC [Concomitant]
  10. CLONIDINE [Concomitant]
  11. ZEMPLAR [Concomitant]
  12. VENOFER [Concomitant]
     Route: 042
  13. FOSRENOL [Concomitant]
  14. PREVACID [Concomitant]
  15. NUTROPIN [Concomitant]
     Route: 058
  16. VITAMIN B-12 [Concomitant]

REACTIONS (4)
  - ANTI-ERYTHROPOIETIN ANTIBODY POSITIVE [None]
  - NEPHRECTOMY [None]
  - NON-NEUTRALISING ANTIBODIES POSITIVE [None]
  - THERAPEUTIC RESPONSE DECREASED [None]
